FAERS Safety Report 8798424 (Version 2)
Quarter: 2013Q1

REPORT INFORMATION
  Report Type: Report from Study
  Country: JP (occurrence: JP)
  Receive Date: 20120920
  Receipt Date: 20130329
  Transmission Date: 20140127
  Serious: Yes (Hospitalization)
  Sender: FDA-Public Use
  Company Number: JP-009507513-1209JPN006322

PATIENT
  Age: 69 Year
  Sex: Female
  Weight: 48 kg

DRUGS (10)
  1. PEGINTRON [Suspect]
     Indication: CHRONIC HEPATITIS C
     Dosage: 60 MICROGRAM, UNK
     Route: 058
     Dates: start: 20120531, end: 20120704
  2. PEGINTRON [Suspect]
     Dosage: 50 MICROGRAM, UNK
     Route: 058
     Dates: start: 20120705, end: 20120729
  3. PEGINTRON [Suspect]
     Dosage: 50 MICROGRAM, UNK
     Route: 058
     Dates: start: 20120809, end: 20120815
  4. PEGINTRON [Suspect]
     Dosage: 30 MICROGRAM, UNK
     Route: 058
     Dates: start: 20120816
  5. REBETOL [Suspect]
     Indication: CHRONIC HEPATITIS C
     Dosage: 400 MG, UNK
     Route: 048
     Dates: start: 20120531, end: 20120704
  6. REBETOL [Suspect]
     Dosage: 200 MG, UNK
     Route: 048
     Dates: start: 20120705
  7. TELAVIC [Suspect]
     Indication: CHRONIC HEPATITIS C
     Dosage: 1500 MG, UNK
     Dates: start: 20120531, end: 20120729
  8. AMLODIN OD [Concomitant]
     Indication: HYPERTENSION
     Dosage: 2.5 MG, UNK
     Route: 048
  9. METHYCOBAL [Concomitant]
     Indication: HYPOAESTHESIA
     Dosage: 1500 MICROGRAM, UNK
     Route: 048
  10. THYRADIN-S [Concomitant]
     Indication: HYPOTHYROIDISM
     Dosage: 100 MICROGRAM, UNK
     Route: 048

REACTIONS (1)
  - Malaise [Not Recovered/Not Resolved]
